FAERS Safety Report 25729719 (Version 2)
Quarter: 2025Q3

REPORT INFORMATION
  Report Type: Report from Study
  Country: US (occurrence: US)
  Receive Date: 20250827
  Receipt Date: 20250903
  Transmission Date: 20251021
  Serious: Yes (Other)
  Sender: ABBVIE
  Company Number: US-ABBVIE-6429212

PATIENT
  Sex: Male

DRUGS (3)
  1. HUMIRA [Suspect]
     Active Substance: ADALIMUMAB
     Indication: Psoriasis
     Route: 058
     Dates: start: 20240521
  2. PREDNISONE [Concomitant]
     Active Substance: PREDNISONE
     Indication: Product used for unknown indication
  3. ENBREL [Suspect]
     Active Substance: ETANERCEPT
     Indication: Product used for unknown indication
     Route: 065

REACTIONS (11)
  - Systemic lupus erythematosus [Not Recovered/Not Resolved]
  - Sjogren^s syndrome [Not Recovered/Not Resolved]
  - Vitiligo [Not Recovered/Not Resolved]
  - Drug ineffective [Unknown]
  - Investigation abnormal [Unknown]
  - Back pain [Not Recovered/Not Resolved]
  - Spondylitis [Not Recovered/Not Resolved]
  - Neuralgia [Recovered/Resolved]
  - Myalgia [Unknown]
  - Drug ineffective [Unknown]
  - Injection [Not Recovered/Not Resolved]
